FAERS Safety Report 10247527 (Version 2)
Quarter: 2015Q3

REPORT INFORMATION
  Report Type: Spontaneous
  Country: US (occurrence: US)
  Receive Date: 20140619
  Receipt Date: 20150717
  Transmission Date: 20151125
  Serious: Yes (Death, Other)
  Sender: FDA-Public Use
  Company Number: US-SA-2014SA078335

PATIENT

DRUGS (4)
  1. ASPIRIN. [Concomitant]
     Active Substance: ASPIRIN
     Dates: start: 20091026, end: 20091109
  2. ASPIRIN. [Concomitant]
     Active Substance: ASPIRIN
     Dates: start: 20081124
  3. PLAVIX [Suspect]
     Active Substance: CLOPIDOGREL BISULFATE
     Indication: ANGINA UNSTABLE
     Route: 048
     Dates: start: 20091026, end: 20091109
  4. ASPIRIN. [Concomitant]
     Active Substance: ASPIRIN
     Dates: end: 20091130

REACTIONS (3)
  - Cerebral haemorrhage [Fatal]
  - Haemorrhage [Unknown]
  - Multiple injuries [Unknown]
